FAERS Safety Report 17951656 (Version 4)
Quarter: 2022Q1

REPORT INFORMATION
  Report Type: Spontaneous
  Country: US (occurrence: US)
  Receive Date: 20200626
  Receipt Date: 20220323
  Transmission Date: 20220424
  Serious: No
  Sender: FDA-Public Use
  Company Number: US-PFIZER INC-2020098741

PATIENT
  Age: 13 Year
  Sex: Male

DRUGS (2)
  1. GENOTROPIN [Suspect]
     Active Substance: SOMATROPIN
     Indication: Renal transplant
     Dosage: 1.4 MG, DAILY
     Dates: start: 202003
  2. GENOTROPIN [Suspect]
     Active Substance: SOMATROPIN
     Indication: Chronic kidney disease
     Dosage: 2.2 MG, DAILY

REACTIONS (5)
  - Device use error [Unknown]
  - Drug dose omission by device [Unknown]
  - Off label use [Unknown]
  - Device issue [Unknown]
  - Hepatic pain [Unknown]

NARRATIVE: CASE EVENT DATE: 20200301
